FAERS Safety Report 9417430 (Version 1)
Quarter: 2013Q3

REPORT INFORMATION
  Report Type: Spontaneous
  Country: CN (occurrence: None)
  Receive Date: 20130719
  Receipt Date: 20130719
  Transmission Date: 20140515
  Serious: Yes (Other)
  Sender: FDA-Public Use
  Company Number: FK201302433

PATIENT
  Age: 78 Year
  Sex: Male

DRUGS (1)
  1. INTRALIPID [Suspect]
     Indication: SUPPLEMENTATION THERAPY
     Route: 042
     Dates: start: 20120611, end: 20120611

REACTIONS (6)
  - Diarrhoea [None]
  - Abdominal discomfort [None]
  - Syncope [None]
  - Heart sounds abnormal [None]
  - Abdominal pain [None]
  - Hyperpyrexia [None]
